FAERS Safety Report 4829979-0 (Version None)
Quarter: 2005Q4

REPORT INFORMATION
  Report Type: 
  Country: None (occurrence: None)
  Receive Date: 20051115
  Receipt Date: 20051115
  Transmission Date: 20060501
  Serious: Yes (Hospitalization)
  Sender: FDA-Public Use
  Company Number: None

PATIENT
  Age: 81 Year
  Sex: Male
  Weight: 85.7298 kg

DRUGS (13)
  1. ATENOLOL [Suspect]
     Indication: HYPERTENSION
     Dosage: 12.5MG  PO DAILY
     Route: 048
     Dates: start: 20030201, end: 20050901
  2. DOXAZOSIN MESYLATE [Suspect]
     Indication: BENIGN PROSTATIC HYPERPLASIA
     Dosage: 0.5MG PO DAILY
     Route: 048
     Dates: start: 20040901, end: 20050901
  3. SIMVASTATIN [Concomitant]
  4. NPH INSULIN [Concomitant]
  5. REGULAR INSULIN [Concomitant]
  6. SUCRALFATE [Concomitant]
  7. CITALOPRAM [Concomitant]
  8. TERAZOSIN [Concomitant]
  9. PREDNISONE [Concomitant]
  10. CEPHALEXIN [Concomitant]
  11. LORATADINE [Concomitant]
  12. ACETAMINOPHEN [Concomitant]
  13. LISINOPRIL [Concomitant]

REACTIONS (13)
  - ASTHENIA [None]
  - BLOOD GLUCOSE INCREASED [None]
  - CHEST PAIN [None]
  - DIZZINESS [None]
  - DIZZINESS POSTURAL [None]
  - HYPERHIDROSIS [None]
  - HYPOGLYCAEMIA [None]
  - HYPOVOLAEMIA [None]
  - NOCTURIA [None]
  - ORTHOSTATIC HYPOTENSION [None]
  - POLYURIA [None]
  - VASODILATATION [None]
  - VOMITING [None]
